FAERS Safety Report 13390878 (Version 1)
Quarter: 2017Q1

REPORT INFORMATION
  Report Type: Spontaneous
  Country: US (occurrence: US)
  Receive Date: 20170331
  Receipt Date: 20170331
  Transmission Date: 20170429
  Serious: No
  Sender: FDA-Public Use
  Company Number: None

PATIENT
  Age: 41 Year
  Sex: Female
  Weight: 75.15 kg

DRUGS (4)
  1. DRANJ GINGER TEA [Concomitant]
  2. ONE A DAY VITAMINS [Concomitant]
  3. SALINE NASAL [Suspect]
     Active Substance: SODIUM CHLORIDE
     Indication: MULTIPLE ALLERGIES
     Dosage: ?          QUANTITY:2 SPRAY(S);OTHER ROUTE:NASAL SPRAY?
     Route: 045
     Dates: start: 20170330, end: 20170330
  4. ALBUTEROL. [Concomitant]
     Active Substance: ALBUTEROL

REACTIONS (1)
  - Insomnia [None]

NARRATIVE: CASE EVENT DATE: 20170330
